FAERS Safety Report 7037748-9 (Version None)
Quarter: 2010Q4

REPORT INFORMATION
  Report Type: 
  Country: None (occurrence: None)
  Receive Date: 20101011
  Receipt Date: 20100325
  Transmission Date: 20110411
  Serious: Yes (Hospitalization)
  Sender: FDA-Public Use
  Company Number: US-BAYER-201010460NA

PATIENT
  Age: 25 Year
  Sex: Female
  Weight: 68 kg

DRUGS (4)
  1. OCELLA [Suspect]
     Indication: PRODUCT USED FOR UNKNOWN INDICATION
     Route: 048
     Dates: start: 20060701, end: 20071001
  2. YAZ [Suspect]
     Indication: PRODUCT USED FOR UNKNOWN INDICATION
     Route: 048
     Dates: start: 20060701, end: 20071001
  3. YASMIN [Suspect]
     Indication: CONTRACEPTION
     Route: 048
     Dates: start: 20060721, end: 20071030
  4. LOVENOX [Concomitant]
     Route: 065

REACTIONS (4)
  - CHEST PAIN [None]
  - DYSPNOEA [None]
  - EPIGASTRIC DISCOMFORT [None]
  - PULMONARY EMBOLISM [None]
